FAERS Safety Report 11785862 (Version 2)
Quarter: 2016Q1

REPORT INFORMATION
  Report Type: Spontaneous
  Country: FR (occurrence: FR)
  Receive Date: 20151130
  Receipt Date: 20160121
  Transmission Date: 20160525
  Serious: Yes (Hospitalization, Other)
  Sender: FDA-Public Use
  Company Number: FR-PFIZER INC-2015397406

PATIENT
  Age: 64 Year
  Sex: Male

DRUGS (5)
  1. SALAZOPYRINE [Suspect]
     Active Substance: SULFASALAZINE
     Indication: ANKYLOSING SPONDYLITIS
     Dosage: 500 MG, 6X/DAY
     Route: 048
     Dates: start: 20150819, end: 20150920
  2. ARCOXIA [Concomitant]
     Active Substance: ETORICOXIB
     Dosage: UNK, CYCLIC
  3. PARACETAMOL [Concomitant]
     Active Substance: ACETAMINOPHEN
     Indication: PYREXIA
  4. ARTOTEC [Concomitant]
     Active Substance: DICLOFENAC SODIUM\MISOPROSTOL
     Dosage: UNK, CYCLIC
  5. COZAAR [Concomitant]
     Active Substance: LOSARTAN POTASSIUM
     Indication: HYPERTENSION
     Dosage: UNK
     Route: 048

REACTIONS (3)
  - Drug reaction with eosinophilia and systemic symptoms [Recovering/Resolving]
  - Product use issue [Recovered/Resolved]
  - Impetigo [Unknown]

NARRATIVE: CASE EVENT DATE: 20150919
